FAERS Safety Report 11119728 (Version 1)
Quarter: 2015Q2

REPORT INFORMATION
  Report Type: Spontaneous
  Country: US (occurrence: None)
  Receive Date: 20150515
  Receipt Date: 20150515
  Transmission Date: 20150821
  Serious: Yes (Other)
  Sender: FDA-Public Use
  Company Number: None

PATIENT
  Age: 58 Year
  Sex: Male
  Weight: 99.79 kg

DRUGS (7)
  1. HAWTHORNE BERRYS [Concomitant]
  2. CINNAMON. [Concomitant]
     Active Substance: CINNAMON
  3. NAPROXEN. [Concomitant]
     Active Substance: NAPROXEN
  4. TAMSULOSIN 0.4MG [Suspect]
     Active Substance: TAMSULOSIN
     Indication: BENIGN PROSTATIC HYPERPLASIA
     Dosage: 1 PER DAY
     Route: 048
     Dates: start: 20100505, end: 20150514
  5. PROBIOTICS [Concomitant]
     Active Substance: PROBIOTICS NOS
  6. PANTOPRAZOLE [Concomitant]
     Active Substance: PANTOPRAZOLE SODIUM
  7. TURMERIC [Concomitant]
     Active Substance: TURMERIC

REACTIONS (2)
  - Product substitution issue [None]
  - Drug ineffective [None]
